FAERS Safety Report 4431954-5 (Version None)
Quarter: 2004Q3

REPORT INFORMATION
  Report Type: 
  Country: None (occurrence: None)
  Receive Date: 20040819
  Receipt Date: 20040805
  Transmission Date: 20050211
  Serious: Yes (Death)
  Sender: FDA-Public Use
  Company Number: 702210

PATIENT
  Sex: Female

DRUGS (1)
  1. AMEVIVE [Suspect]
     Dates: end: 20040428

REACTIONS (1)
  - DEATH [None]
